FAERS Safety Report 4381416-9 (Version None)
Quarter: 2004Q2

REPORT INFORMATION
  Report Type: 
  Country: None (occurrence: None)
  Receive Date: 20040616
  Receipt Date: 20040609
  Transmission Date: 20050107
  Serious: Yes (Death)
  Sender: FDA-Public Use
  Company Number: USA040669067

PATIENT
  Age: 59 Year
  Sex: Female

DRUGS (3)
  1. SYMBYAX [Suspect]
     Indication: SCHIZOPHRENIA
  2. SEROQUEL [Concomitant]
  3. TRAZADONE (TRAZODONE) [Concomitant]

REACTIONS (3)
  - ADVERSE DRUG REACTION [None]
  - DRUG LEVEL INCREASED [None]
  - MEDICATION ERROR [None]
